FAERS Safety Report 7722060-2 (Version None)
Quarter: 2011Q3

REPORT INFORMATION
  Report Type: 
  Country: None (occurrence: None)
  Receive Date: 20110831
  Receipt Date: 20110825
  Transmission Date: 20111222
  Serious: Yes (Hospitalization, Other)
  Sender: FDA-Public Use
  Company Number: US-ABBOTT-11P-163-0849312-00

PATIENT
  Sex: Male
  Weight: 81.72 kg

DRUGS (14)
  1. VITAMIN E [Concomitant]
     Indication: PRODUCT USED FOR UNKNOWN INDICATION
  2. ASPIRIN [Concomitant]
     Indication: CARDIOVASCULAR EVENT PROPHYLAXIS
  3. VITAMIN D2 [Concomitant]
     Indication: VITAMIN D DECREASED
  4. LEXAPRO [Concomitant]
     Indication: DEPRESSION
  5. CRESTOR [Concomitant]
     Indication: BLOOD CHOLESTEROL INCREASED
  6. FOLIC ACID [Concomitant]
     Indication: PRODUCT USED FOR UNKNOWN INDICATION
  7. MULTI-VITAMIN [Concomitant]
     Indication: PRODUCT USED FOR UNKNOWN INDICATION
  8. ASCORBIC ACID [Concomitant]
     Indication: PRODUCT USED FOR UNKNOWN INDICATION
  9. MUCINEX [Concomitant]
     Indication: SEASONAL ALLERGY
  10. HUMIRA [Suspect]
     Indication: RHEUMATOID ARTHRITIS
     Dates: start: 20080101, end: 20110727
  11. LORATADINE [Concomitant]
     Indication: SEASONAL ALLERGY
  12. PHENYLEPHRINE HCL [Concomitant]
     Indication: NASAL CONGESTION
  13. AMBIEN [Concomitant]
     Indication: INSOMNIA
  14. BENADRYL [Concomitant]
     Indication: SEASONAL ALLERGY

REACTIONS (12)
  - HUMERUS FRACTURE [None]
  - SEPSIS [None]
  - PYREXIA [None]
  - BRAIN INJURY [None]
  - ROAD TRAFFIC ACCIDENT [None]
  - ACETABULUM FRACTURE [None]
  - SKULL FRACTURE [None]
  - GASTROINTESTINAL TUBE INSERTION [None]
  - FACIAL BONES FRACTURE [None]
  - DEEP VEIN THROMBOSIS [None]
  - CERVICAL VERTEBRAL FRACTURE [None]
  - TRACHEOSTOMY [None]
